FAERS Safety Report 7962371-9 (Version None)
Quarter: 2011Q4

REPORT INFORMATION
  Report Type: 
  Country: None (occurrence: None)
  Receive Date: 20111207
  Receipt Date: 20111201
  Transmission Date: 20120403
  Serious: Yes (Hospitalization, Other)
  Sender: FDA-Public Use
  Company Number: US-MERCK-1107USA01264

PATIENT
  Age: 60 Year
  Sex: Female

DRUGS (4)
  1. PREDNISONE [Concomitant]
     Indication: ADRENAL INSUFFICIENCY
     Route: 048
  2. FOSAMAX [Suspect]
     Indication: PROPHYLAXIS
     Route: 048
     Dates: start: 20050301, end: 20080301
  3. ALENDRONATE SODIUM [Suspect]
     Indication: PROPHYLAXIS
     Route: 048
     Dates: start: 20080401, end: 20100101
  4. FOSAMAX [Suspect]
     Indication: OSTEOPOROSIS PROPHYLAXIS
     Route: 048
     Dates: start: 20050301, end: 20080301

REACTIONS (24)
  - SPINAL COLUMN STENOSIS [None]
  - UTERINE DISORDER [None]
  - FRACTURE DELAYED UNION [None]
  - IMPLANT SITE PAIN [None]
  - CHOLELITHIASIS [None]
  - VITAMIN D DEFICIENCY [None]
  - PAIN IN EXTREMITY [None]
  - BURSITIS [None]
  - FALL [None]
  - RHINITIS ALLERGIC [None]
  - TENDON CALCIFICATION [None]
  - TREATMENT NONCOMPLIANCE [None]
  - ANAEMIA POSTOPERATIVE [None]
  - IMPAIRED HEALING [None]
  - LIMB ASYMMETRY [None]
  - GAIT DISTURBANCE [None]
  - ARTHRALGIA [None]
  - URINARY TRACT INFECTION ENTEROCOCCAL [None]
  - TOOTH DISORDER [None]
  - FEMUR FRACTURE [None]
  - THROMBOCYTOPENIA [None]
  - LUMBAR SPINAL STENOSIS [None]
  - STRESS FRACTURE [None]
  - PATHOLOGICAL FRACTURE [None]
